FAERS Safety Report 4876933-9 (Version None)
Quarter: 2006Q1

REPORT INFORMATION
  Report Type: 
  Country: None (occurrence: None)
  Receive Date: 20060110
  Receipt Date: 20051219
  Transmission Date: 20060701
  Serious: Yes (Hospitalization)
  Sender: FDA-Public Use
  Company Number: US-ROCHE-429424

PATIENT
  Age: 51 Year
  Sex: Male
  Weight: 119.7 kg

DRUGS (7)
  1. PEGASYS [Suspect]
     Indication: HEPATITIS C
     Route: 058
     Dates: start: 20050215, end: 20050415
  2. PEGASYS [Suspect]
     Route: 058
     Dates: start: 20051115, end: 20051212
  3. COPEGUS [Suspect]
     Indication: HEPATITIS C
     Route: 048
     Dates: start: 20050215, end: 20050415
  4. COPEGUS [Suspect]
     Route: 048
     Dates: start: 20051115, end: 20051212
  5. COZAAR [Concomitant]
     Route: 048
     Dates: start: 20050115
  6. LEXAPRO [Concomitant]
     Indication: DEPRESSION
     Route: 048
     Dates: start: 20050115
  7. AMBIEN [Concomitant]
     Dosage: AT BEDTIME.
     Route: 048

REACTIONS (3)
  - BLOOD CREATINE PHOSPHOKINASE INCREASED [None]
  - CHEST DISCOMFORT [None]
  - DIZZINESS [None]
